FAERS Safety Report 10427100 (Version 1)
Quarter: 2014Q3

REPORT INFORMATION
  Report Type: Spontaneous
  Country: CN (occurrence: CN)
  Receive Date: 20140903
  Receipt Date: 20140903
  Transmission Date: 20150326
  Serious: Yes (Death, Other)
  Sender: FDA-Public Use
  Company Number: CN-PFIZER INC-2014243576

PATIENT
  Age: 55 Year
  Sex: Male

DRUGS (1)
  1. MS CONTIN [Suspect]
     Active Substance: MORPHINE SULFATE
     Indication: CARCINOID TUMOUR PULMONARY
     Dosage: 30 MG, Q12H
     Route: 048
     Dates: start: 20120904

REACTIONS (3)
  - Organ failure [Fatal]
  - Malignant neoplasm progression [Fatal]
  - Constipation [Not Recovered/Not Resolved]

NARRATIVE: CASE EVENT DATE: 20121019
